FAERS Safety Report 14270067 (Version 1)
Quarter: 2017Q4

REPORT INFORMATION
  Report Type: Spontaneous
  Country: BE (occurrence: BE)
  Receive Date: 20171211
  Receipt Date: 20171211
  Transmission Date: 20180321
  Serious: Yes (Other)
  Sender: FDA-Public Use
  Company Number: BE-OTSUKA-DJ201308009

PATIENT

DRUGS (2)
  1. ABILIFY [Suspect]
     Active Substance: ARIPIPRAZOLE
     Indication: SCHIZOPHRENIA
     Route: 048
     Dates: start: 20060101, end: 20130903
  2. RITMONORM [Concomitant]
     Active Substance: PROPAFENONE HYDROCHLORIDE
     Route: 065

REACTIONS (1)
  - Arrhythmia [Unknown]
